FAERS Safety Report 6294781-2 (Version None)
Quarter: 2009Q3

REPORT INFORMATION
  Report Type: 
  Country: None (occurrence: None)
  Receive Date: 20090803
  Receipt Date: 20090720
  Transmission Date: 20100115
  Serious: Yes (Death, Hospitalization)
  Sender: FDA-Public Use
  Company Number: BR-BAYER-200823666LA

PATIENT
  Age: 57 Year
  Sex: Female

DRUGS (5)
  1. BETAFERON [Suspect]
     Indication: MULTIPLE SCLEROSIS
     Dosage: BETAJECT
     Route: 058
     Dates: start: 20061201, end: 20081201
  2. PURAN [Concomitant]
     Indication: HYPOTHYROIDISM
     Dosage: TOTAL DAILY DOSE: 75 MG
     Route: 048
     Dates: start: 19940101, end: 20081201
  3. BACLOFEN [Concomitant]
     Indication: MUSCLE SPASMS
     Dosage: TOTAL DAILY DOSE: 40 MG
     Route: 065
     Dates: start: 20060101, end: 20081201
  4. BUPROPION HCL [Concomitant]
     Indication: DEPRESSION
     Dosage: TOTAL DAILY DOSE: 300 MG
     Route: 048
     Dates: start: 20060101, end: 20081201
  5. AMITRIPTYLINE HCL [Concomitant]
     Indication: DEPRESSION
     Dosage: 1 TABLET AND A HALF , THREE TIMES DAILY
     Route: 048
     Dates: start: 20060101, end: 20070101

REACTIONS (4)
  - CARDIAC FAILURE CONGESTIVE [None]
  - CARDIOMEGALY [None]
  - CONSTIPATION [None]
  - VENTRICULAR FIBRILLATION [None]
